FAERS Safety Report 14765781 (Version 1)
Quarter: 2018Q2

REPORT INFORMATION
  Report Type: Spontaneous
  Country: US (occurrence: US)
  Receive Date: 20180416
  Receipt Date: 20180416
  Transmission Date: 20180711
  Serious: Yes (Death, Hospitalization)
  Sender: FDA-Public Use
  Company Number: US-ARBOR PHARMACEUTICALS, LLC-US-2018ARB000437

PATIENT
  Age: 19 Year
  Sex: Female

DRUGS (3)
  1. PHENTERMINE. [Suspect]
     Active Substance: PHENTERMINE
     Indication: PRODUCT USED FOR UNKNOWN INDICATION
     Dosage: UNK
  2. METHAMPHETAMINE                    /00069101/ [Suspect]
     Active Substance: METHAMPHETAMINE
     Indication: PRODUCT USED FOR UNKNOWN INDICATION
     Dosage: UNK
  3. AMPHETAMINE SULFATE. [Suspect]
     Active Substance: AMPHETAMINE SULFATE
     Indication: PRODUCT USED FOR UNKNOWN INDICATION
     Dosage: UNK

REACTIONS (16)
  - Hypotension [Unknown]
  - Coagulopathy [Unknown]
  - Hyperthermia [Unknown]
  - Acute respiratory distress syndrome [Unknown]
  - Depressed level of consciousness [Unknown]
  - Thrombocytopenia [Unknown]
  - Rhabdomyolysis [Unknown]
  - Tachycardia [Unknown]
  - Delirium [Unknown]
  - Toxicity to various agents [Fatal]
  - Acute lung injury [Unknown]
  - Leukocytosis [Unknown]
  - Coma [Unknown]
  - Acute kidney injury [Unknown]
  - Metabolic acidosis [Unknown]
  - Pneumonia aspiration [Unknown]
